FAERS Safety Report 15308954 (Version 2)
Quarter: 2018Q4

REPORT INFORMATION
  Report Type: Spontaneous
  Country: FR (occurrence: FR)
  Receive Date: 20180823
  Receipt Date: 20181012
  Transmission Date: 20190204
  Serious: Yes (Death)
  Sender: FDA-Public Use
  Company Number: FR-AUROBINDO-AUR-APL-2018-040528

PATIENT
  Age: 72 Year
  Sex: Female

DRUGS (12)
  1. PRAZEPAM ARROW 10 MG TABLET [Suspect]
     Active Substance: PRAZEPAM
     Indication: ANXIETY
     Dosage: 1 DOSAGE FORM, DAILY
     Route: 048
     Dates: end: 20180712
  2. ARACYTINE [Suspect]
     Active Substance: CYTARABINE
     Indication: B-CELL LYMPHOMA
     Dosage: 40 MILLIGRAM IN TOTAL
     Route: 037
     Dates: start: 20180703, end: 20180703
  3. PANTOPRAZOLE MYLAN [Suspect]
     Active Substance: PANTOPRAZOLE SODIUM
     Indication: PROPHYLAXIS
     Dosage: 1 DOSAGE FORM, DAILY
     Route: 048
     Dates: end: 20180720
  4. NEFOPAM MYLAN [Suspect]
     Active Substance: NEFOPAM
     Indication: PAIN
     Dosage: 20 MILLIGRAM, DAILY
     Route: 042
     Dates: start: 20180701, end: 20180712
  5. LOVENOX [Suspect]
     Active Substance: ENOXAPARIN SODIUM
     Indication: THROMBOSIS PROPHYLAXIS
     Dosage: 4000 INTERNATIONAL UNIT, DAILY
     Route: 058
     Dates: start: 20180629, end: 20180719
  6. LEVOTHYROX [Suspect]
     Active Substance: LEVOTHYROXINE
     Indication: HYPOTHYROIDISM
     Dosage: 1 DOSAGE FORM, DAILY
     Route: 048
     Dates: end: 20180714
  7. LERCANIDIPINE ARROW [Suspect]
     Active Substance: LERCANIDIPINE
     Indication: HYPERTENSION
     Dosage: 5 MILLIGRAM, DAILY
     Route: 048
     Dates: end: 20180712
  8. OXYNORM [Suspect]
     Active Substance: OXYCODONE HYDROCHLORIDE
     Indication: PAIN
     Dosage: 1 DOSAGE FORM, DAILY
     Route: 048
     Dates: end: 20180714
  9. VALACYCLOVIR [Suspect]
     Active Substance: VALACYCLOVIR HYDROCHLORIDE
     Indication: ANTIVIRAL PROPHYLAXIS
     Dosage: 1 DOSAGE FORM, DAILY
     Route: 048
     Dates: end: 20180712
  10. VENLAFAXINE BLUEFISH [Suspect]
     Active Substance: VENLAFAXINE HYDROCHLORIDE
     Indication: MAJOR DEPRESSION
     Dosage: 2 DOSAGE FORM, DAILY
     Route: 048
     Dates: end: 20180716
  11. METHOTREXATE BIODIM [Suspect]
     Active Substance: METHOTREXATE
     Indication: B-CELL LYMPHOMA
     Dosage: 15 MILLIGRAM IN TOTAL
     Route: 037
     Dates: start: 20180703, end: 20180703
  12. PARAFFIN [Suspect]
     Active Substance: PARAFFIN
     Indication: CONSTIPATION
     Dosage: 1 DOSAGE FORM, DAILY
     Route: 048
     Dates: start: 20180630, end: 20180714

REACTIONS (2)
  - Alanine aminotransferase increased [Fatal]
  - Aspartate aminotransferase increased [Fatal]

NARRATIVE: CASE EVENT DATE: 20180704
